FAERS Safety Report 15440899 (Version 1)
Quarter: 2018Q3

REPORT INFORMATION
  Report Type: Spontaneous
  Country: US (occurrence: US)
  Receive Date: 20180925
  Receipt Date: 20180925
  Transmission Date: 20181010
  Serious: Yes (Other)
  Sender: FDA-Public Use
  Company Number: None

PATIENT
  Age: 86 Year
  Sex: Female
  Weight: 81.65 kg

DRUGS (10)
  1. TIMOLOL. [Concomitant]
     Active Substance: TIMOLOL
  2. FISH OIL [Concomitant]
     Active Substance: FISH OIL
  3. TYLENOL [Concomitant]
     Active Substance: ACETAMINOPHEN
  4. REPATHA [Suspect]
     Active Substance: EVOLOCUMAB
     Indication: BLOOD CHOLESTEROL INCREASED
     Dates: start: 20180601, end: 20180615
  5. LOSARTAN/HCTZ [Concomitant]
     Active Substance: HYDROCHLOROTHIAZIDE\LOSARTAN
  6. COQ10 [Concomitant]
     Active Substance: UBIDECARENONE
  7. MULTIVITAMIN [Concomitant]
     Active Substance: VITAMINS
  8. LUMIGAN [Concomitant]
     Active Substance: BIMATOPROST
  9. ADVIL [Concomitant]
     Active Substance: IBUPROFEN
  10. IRON [Concomitant]
     Active Substance: IRON

REACTIONS (2)
  - Myalgia [None]
  - Pain [None]

NARRATIVE: CASE EVENT DATE: 20180615
